FAERS Safety Report 4837840-0 (Version None)
Quarter: 2005Q4

REPORT INFORMATION
  Report Type: 
  Country: None (occurrence: None)
  Receive Date: 20051122
  Receipt Date: 20051122
  Transmission Date: 20060501
  Serious: Yes (Life-Threatening, Hospitalization)
  Sender: FDA-Public Use
  Company Number: None

PATIENT
  Age: 60 Year
  Sex: Male
  Weight: 108.8633 kg

DRUGS (2)
  1. METFORMIN [Suspect]
     Indication: DIABETES MELLITUS
     Dosage: 1 TAB  2 TIME A DAY
     Dates: start: 20051019, end: 20051118
  2. NORVASC [Suspect]
     Indication: HYPERTENSION
     Dosage: 1 TAB  1 TIME A DAY
     Dates: start: 20050708, end: 20050913

REACTIONS (6)
  - CHEST DISCOMFORT [None]
  - CHEST PAIN [None]
  - COUGH [None]
  - MEDICATION TAMPERING [None]
  - NASAL CONGESTION [None]
  - THINKING ABNORMAL [None]
